FAERS Safety Report 20323968 (Version 1)
Quarter: 2022Q1

REPORT INFORMATION
  Report Type: Spontaneous
  Country: US (occurrence: US)
  Receive Date: 20220111
  Receipt Date: 20220111
  Transmission Date: 20220423
  Serious: No
  Sender: FDA-Public Use
  Company Number: US-GILEAD-2022-0564755

PATIENT
  Sex: Male

DRUGS (9)
  1. VEMLIDY [Suspect]
     Active Substance: TENOFOVIR ALAFENAMIDE FUMARATE
     Indication: Chronic hepatitis B
     Dosage: 25 MG, QD
     Route: 048
  2. ALAWAY [Concomitant]
     Active Substance: KETOTIFEN FUMARATE
  3. AZELASTINE HYDROCHLORIDE [Concomitant]
     Active Substance: AZELASTINE HYDROCHLORIDE
  4. ENTECAVIR [Concomitant]
     Active Substance: ENTECAVIR
  5. FLONASE [Concomitant]
     Active Substance: FLUTICASONE PROPIONATE
  6. GINKGO [Concomitant]
     Active Substance: GINKGO
  7. LORATADINE [Concomitant]
     Active Substance: LORATADINE
  8. FISH OIL [Concomitant]
     Active Substance: FISH OIL
  9. FLOMAX [Concomitant]
     Active Substance: TAMSULOSIN HYDROCHLORIDE

REACTIONS (1)
  - Dry mouth [Not Recovered/Not Resolved]
